FAERS Safety Report 6590540-1 (Version None)
Quarter: 2010Q1

REPORT INFORMATION
  Report Type: 
  Country: None (occurrence: None)
  Receive Date: 20100219
  Receipt Date: 20100208
  Transmission Date: 20100710
  Serious: Yes (Other)
  Sender: FDA-Public Use
  Company Number: BR-PFIZER INC-2009308783

PATIENT
  Sex: Female

DRUGS (1)
  1. GEODON [Suspect]
     Indication: SCHIZOPHRENIA
     Dosage: 80 MG, DAILY
     Route: 048
     Dates: start: 20080101

REACTIONS (4)
  - HYPERTENSION [None]
  - INFERTILITY FEMALE [None]
  - INSOMNIA [None]
  - WEIGHT INCREASED [None]
